FAERS Safety Report 4404252-3 (Version None)
Quarter: 2004Q3

REPORT INFORMATION
  Report Type: 
  Country: None (occurrence: None)
  Receive Date: 20040720
  Receipt Date: 20040705
  Transmission Date: 20050211
  Serious: Yes (Other)
  Sender: FDA-Public Use
  Company Number: S04-BEL-03049-01

PATIENT
  Age: 78 Year
  Sex: Female
  Weight: 86 kg

DRUGS (11)
  1. MEMANTINE HCL [Suspect]
     Indication: DEMENTIA ALZHEIMER'S TYPE
     Dosage: 20 MG QD PO
     Route: 048
     Dates: start: 20040406, end: 20040413
  2. MEMANTINE HCL [Suspect]
     Indication: DEMENTIA ALZHEIMER'S TYPE
     Dosage: 10 MG QD PO
     Route: 048
     Dates: start: 20040330, end: 20040405
  3. MEMANTINE HCL [Suspect]
     Indication: DEMENTIA ALZHEIMER'S TYPE
     Dosage: 5 MG QD PO
     Route: 048
     Dates: start: 20040315, end: 20040329
  4. HALDOL [Suspect]
     Indication: DEMENTIA ALZHEIMER'S TYPE
     Dosage: 6 DROPS BID
     Dates: start: 20040315, end: 20040414
  5. BURONIL (MELPERONE HYDROCHLORIDE) [Suspect]
     Indication: DEMENTIA ALZHEIMER'S TYPE
     Dosage: 50 MG QD PO
     Route: 048
     Dates: start: 20040315, end: 20040414
  6. CORDARONE (AMIODARONE HYDROCHLORIDE) (AMIODARONE HYDROCHLORIDE) [Concomitant]
  7. ZESTRIL [Concomitant]
  8. CLONIDINE [Concomitant]
  9. LASIX [Concomitant]
  10. SINTROM (ACENOUCOMAROL) [Concomitant]
  11. OMEPRAZOLE [Concomitant]

REACTIONS (4)
  - LOSS OF CONSCIOUSNESS [None]
  - LYMPHOEDEMA [None]
  - SALIVARY HYPERSECRETION [None]
  - URINARY INCONTINENCE [None]
